FAERS Safety Report 12154187 (Version 2)
Quarter: 2016Q3

REPORT INFORMATION
  Report Type: Spontaneous
  Country: US (occurrence: US)
  Receive Date: 20160307
  Receipt Date: 20160808
  Transmission Date: 20161109
  Serious: No
  Sender: FDA-Public Use
  Company Number: US-ASTRAZENECA-2016SE19857

PATIENT
  Sex: Female
  Weight: 59 kg

DRUGS (4)
  1. TUDORZA PRESSAIR [Suspect]
     Active Substance: ACLIDINIUM BROMIDE
     Indication: EX-TOBACCO USER
     Dosage: 400 MCG 1 PUFF TWICE A DAY
     Route: 055
  2. ESTRADIOL HRT [Concomitant]
     Dosage: DAILY
     Dates: start: 1996
  3. TUDORZA PRESSAIR [Suspect]
     Active Substance: ACLIDINIUM BROMIDE
     Indication: EX-TOBACCO USER
     Dosage: 400 MCG 1 PUFF DAILY
     Route: 055
  4. TUDORZA PRESSAIR [Suspect]
     Active Substance: ACLIDINIUM BROMIDE
     Indication: EX-TOBACCO USER
     Dosage: 400 MCG 1 PUFF DAILY
     Route: 055

REACTIONS (5)
  - Intentional product misuse [Unknown]
  - Malaise [Not Recovered/Not Resolved]
  - Extra dose administered [Unknown]
  - Drug dose omission [Unknown]
  - Device malfunction [Unknown]
